FAERS Safety Report 15592933 (Version 1)
Quarter: 2018Q4

REPORT INFORMATION
  Report Type: Spontaneous
  Country: US (occurrence: US)
  Receive Date: 20181107
  Receipt Date: 20181107
  Transmission Date: 20190205
  Serious: No
  Sender: FDA-Public Use
  Company Number: None

PATIENT
  Age: 38 Year
  Sex: Female
  Weight: 63 kg

DRUGS (1)
  1. BUPROPRION HCL SR 150 MG TABLET [Suspect]
     Active Substance: BUPROPION HYDROCHLORIDE
     Indication: DEPRESSION
     Dosage: ?          QUANTITY:1 TABLET(S);?
     Route: 048

REACTIONS (10)
  - Product substitution issue [None]
  - Anxiety [None]
  - Crying [None]
  - Mood swings [None]
  - Withdrawal syndrome [None]
  - Panic attack [None]
  - Intrusive thoughts [None]
  - Drug ineffective [None]
  - Depression [None]
  - Apathy [None]

NARRATIVE: CASE EVENT DATE: 20181018
